FAERS Safety Report 11779407 (Version 3)
Quarter: 2016Q2

REPORT INFORMATION
  Report Type: Spontaneous
  Country: US (occurrence: US)
  Receive Date: 20151125
  Receipt Date: 20160608
  Transmission Date: 20160815
  Serious: Yes (Other)
  Sender: FDA-Public Use
  Company Number: US-MDT-ADR-2015-02246

PATIENT
  Age: 60 Year
  Sex: Female

DRUGS (4)
  1. ZOHYDRO [Suspect]
     Active Substance: HYDROCODONE BITARTRATE
  2. SUBSYS [Suspect]
     Active Substance: FENTANYL
     Dosage: 100MCG QID PRN
  3. NORCO [Suspect]
     Active Substance: ACETAMINOPHEN\HYDROCODONE BITARTRATE
     Dosage: 10MG EVERY 4-6 HOURS
  4. COMPOUNDED BACLOFEN [Suspect]
     Active Substance: BACLOFEN
     Dosage: 473.8MCG/DAY
     Route: 037
     Dates: start: 20150226, end: 20150515

REACTIONS (1)
  - Anal cancer [Unknown]
